FAERS Safety Report 4921546-3 (Version None)
Quarter: 2006Q1

REPORT INFORMATION
  Report Type: 
  Country: None (occurrence: None)
  Receive Date: 20060222
  Receipt Date: 20060222
  Transmission Date: 20060701
  Serious: Yes (Other)
  Sender: FDA-Public Use
  Company Number: None

PATIENT
  Age: 57 Year
  Sex: Male
  Weight: 88.4061 kg

DRUGS (2)
  1. CALCIUM CARBONATE TABLET (CALCIUM CARBONATE) [Suspect]
     Indication: MINERAL SUPPLEMENTATION
     Dosage: 4 TABLET / PER DAY/ORAL
     Route: 048
     Dates: start: 20030101, end: 20041101
  2. LOVASTATIN [Concomitant]

REACTIONS (1)
  - NEPHROLITHIASIS [None]
